FAERS Safety Report 9826236 (Version 1)
Quarter: 2013Q4

REPORT INFORMATION
  Report Type: Spontaneous
  Country: US (occurrence: None)
  Receive Date: 20131223
  Receipt Date: 20131223
  Transmission Date: 20140711
  Serious: Yes (Other)
  Sender: FDA-Public Use
  Company Number: 222129LEO

PATIENT
  Age: 53 Year
  Sex: Female

DRUGS (13)
  1. PICATO [Suspect]
     Indication: ACTINIC KERATOSIS
     Route: 061
     Dates: start: 20130522
  2. DIOVAN(VALSARTAN) [Concomitant]
  3. SIMVASTATIN(SIMVASTATIN) [Concomitant]
  4. ESTRODIAL(ESTROGEN NOS) [Concomitant]
  5. SIMVACORT(SIMVASTATIN) [Concomitant]
  6. SPIRIVA(TIOTROPIUM BROMIDE) [Concomitant]
  7. XOPENEX(LEVEOSALBUTAMOL) [Concomitant]
  8. DALIRESP(ROFLUMILAST) [Concomitant]
  9. BENADRYL(DIPHENHYDRAMINE HYDROCHLORIDE) [Concomitant]
  10. EXEDRIN(VINCENTS) [Concomitant]
  11. VITAMIN [Concomitant]
  12. AMITRIPTYLINE(AMITRIPTYLINE) [Concomitant]
  13. CITALOPRAM(CITALOPRAM) [Concomitant]

REACTIONS (2)
  - Abnormal sensation in eye [None]
  - Application site pain [None]
